FAERS Safety Report 13301731 (Version 1)
Quarter: 2017Q1

REPORT INFORMATION
  Report Type: Spontaneous
  Country: IT (occurrence: IT)
  Receive Date: 20170307
  Receipt Date: 20170307
  Transmission Date: 20170428
  Serious: Yes (Hospitalization)
  Sender: FDA-Public Use
  Company Number: IT-WEST-WARD PHARMACEUTICALS CORP.-IT-H14001-17-00636

PATIENT
  Age: 77 Year
  Sex: Male

DRUGS (5)
  1. IRINOTECAN HOSPIRA [Suspect]
     Active Substance: IRINOTECAN
     Indication: ADENOCARCINOMA
     Route: 042
     Dates: start: 20170110, end: 20170110
  2. FLUOROURACILE AHCL [Suspect]
     Active Substance: FLUOROURACIL
     Indication: ADENOCARCINOMA
     Route: 040
     Dates: start: 20170117, end: 20170117
  3. FLUOROURACILE AHCL [Suspect]
     Active Substance: FLUOROURACIL
     Route: 041
     Dates: start: 20170117, end: 20170117
  4. IRINOTECAN HOSPIRA [Suspect]
     Active Substance: IRINOTECAN
     Route: 042
     Dates: start: 20170117, end: 20170117
  5. ZALTRAP [Suspect]
     Active Substance: ZIV-AFLIBERCEPT
     Indication: ADENOCARCINOMA
     Dates: start: 20170117, end: 20170117

REACTIONS (4)
  - Subileus [Recovered/Resolved with Sequelae]
  - Faecal vomiting [Recovered/Resolved with Sequelae]
  - Diarrhoea [Recovered/Resolved with Sequelae]
  - Abdominal distension [Recovered/Resolved with Sequelae]

NARRATIVE: CASE EVENT DATE: 20170127
